FAERS Safety Report 4845775-2 (Version None)
Quarter: 2005Q4

REPORT INFORMATION
  Report Type: 
  Country: None (occurrence: None)
  Receive Date: 20051206
  Receipt Date: 20051128
  Transmission Date: 20060501
  Serious: Yes (Death)
  Sender: FDA-Public Use
  Company Number: TR-BRISTOL-MYERS SQUIBB COMPANY-13193842

PATIENT
  Age: 36 Year
  Sex: Female

DRUGS (4)
  1. IFOSFAMIDE [Suspect]
     Indication: ADULT T-CELL LYMPHOMA/LEUKAEMIA REFRACTORY
     Route: 042
  2. METHOTREXATE [Suspect]
     Indication: ADULT T-CELL LYMPHOMA/LEUKAEMIA REFRACTORY
     Route: 037
  3. ETOPOSIDE [Suspect]
     Indication: ADULT T-CELL LYMPHOMA/LEUKAEMIA REFRACTORY
     Route: 042
  4. IDARUBICIN HCL [Suspect]
     Indication: ADULT T-CELL LYMPHOMA/LEUKAEMIA REFRACTORY
     Route: 042

REACTIONS (1)
  - LEUKOENCEPHALOPATHY [None]
